FAERS Safety Report 7934791-X (Version None)
Quarter: 2011Q4

REPORT INFORMATION
  Report Type: 
  Country: None (occurrence: None)
  Receive Date: 20111122
  Receipt Date: 20111114
  Transmission Date: 20120403
  Serious: Yes (Hospitalization)
  Sender: FDA-Public Use
  Company Number: IT-ABBOTT-11P-083-0873892-00

PATIENT
  Sex: Female

DRUGS (2)
  1. CALCIUM CARBONATE [Suspect]
     Indication: HYPOCALCAEMIA
     Dates: start: 20110401, end: 20110515
  2. CALCITRIOL [Suspect]
     Indication: HYPOCALCAEMIA
     Route: 048
     Dates: start: 20110401, end: 20110515

REACTIONS (3)
  - HYPERCALCAEMIA [None]
  - SYNCOPE [None]
  - CONFUSIONAL STATE [None]
